FAERS Safety Report 8886784 (Version 1)
Quarter: 2012Q4

REPORT INFORMATION
  Report Type: 
  Country: US (occurrence: US)
  Receive Date: 20121105
  Receipt Date: 20121105
  Transmission Date: 20130627
  Serious: Yes (Other)
  Sender: FDA-Public Use
  Company Number: US-PFIZER INC-2012274969

PATIENT
  Age: 33 Year
  Sex: Female
  Weight: 68.03 kg

DRUGS (4)
  1. PRISTIQ [Suspect]
     Indication: DEPRESSION
     Dosage: 100 mg, daily
  2. DIAZEPAM [Concomitant]
     Indication: ANXIETY
     Dosage: 10 mg, daily
  3. HUMALOG [Concomitant]
     Indication: DIABETES
     Dosage: 35 IU, as needed
  4. ADDERALL [Concomitant]
     Indication: ATTENTION DEFICIT DISORDER
     Dosage: 10 mg, daily

REACTIONS (6)
  - Drug dose omission [Unknown]
  - Suicidal ideation [Recovered/Resolved]
  - Emotional disorder [Unknown]
  - Crying [Unknown]
  - Anger [Unknown]
  - Malaise [Unknown]
